FAERS Safety Report 6724064-5 (Version None)
Quarter: 2010Q2

REPORT INFORMATION
  Report Type: 
  Country: None (occurrence: None)
  Receive Date: 20100513
  Receipt Date: 20100505
  Transmission Date: 20101027
  Serious: Yes (Other)
  Sender: FDA-Public Use
  Company Number: B0652569A

PATIENT
  Age: 64 Year
  Sex: Male

DRUGS (8)
  1. SALBUTAMOL [Suspect]
     Indication: DRUG USE FOR UNKNOWN INDICATION
     Route: 055
  2. LIPITOR [Suspect]
     Indication: DRUG USE FOR UNKNOWN INDICATION
     Route: 065
  3. SPIRIVA [Suspect]
     Indication: DRUG USE FOR UNKNOWN INDICATION
     Route: 065
  4. ADVAIR DISKUS 100/50 [Suspect]
     Indication: DRUG USE FOR UNKNOWN INDICATION
     Route: 055
  5. FUROSEMIDE [Suspect]
     Indication: DRUG USE FOR UNKNOWN INDICATION
     Route: 065
  6. BENAZEPRIL HYDROCHLORIDE [Suspect]
     Indication: DRUG USE FOR UNKNOWN INDICATION
     Route: 065
  7. TOPROL-XL [Suspect]
     Indication: DRUG USE FOR UNKNOWN INDICATION
     Route: 065
  8. PROCATEROL HCL [Suspect]
     Indication: DRUG USE FOR UNKNOWN INDICATION
     Route: 065

REACTIONS (1)
  - MYALGIA [None]
